FAERS Safety Report 16854479 (Version 2)
Quarter: 2019Q4

REPORT INFORMATION
  Report Type: Spontaneous
  Country: CA (occurrence: CA)
  Receive Date: 20190926
  Receipt Date: 20191114
  Transmission Date: 20200122
  Serious: Yes (Hospitalization, Other)
  Sender: FDA-Public Use
  Company Number: CA-TEVA-2019-CA-1114045

PATIENT
  Age: 54 Year
  Sex: Female

DRUGS (7)
  1. FOSAMAX [Suspect]
     Active Substance: ALENDRONATE SODIUM
     Route: 048
  2. FOSAMAX [Suspect]
     Active Substance: ALENDRONATE SODIUM
     Dosage: 10 MILLIGRAM DAILY;
     Route: 048
  3. ALENDRONATE SODIUM. [Suspect]
     Active Substance: ALENDRONATE SODIUM
     Indication: PRODUCT USED FOR UNKNOWN INDICATION
     Route: 048
  4. ALENDRONATE SODIUM. [Suspect]
     Active Substance: ALENDRONATE SODIUM
     Route: 048
     Dates: start: 20051012, end: 20101003
  5. FOSAMAX [Suspect]
     Active Substance: ALENDRONATE SODIUM
     Dates: start: 20000724, end: 20101003
  6. FOSAMAX [Suspect]
     Active Substance: ALENDRONATE SODIUM
     Indication: PRODUCT USED FOR UNKNOWN INDICATION
     Route: 048
  7. FOSAMAX [Suspect]
     Active Substance: ALENDRONATE SODIUM
     Route: 048
     Dates: start: 200305, end: 200510

REACTIONS (5)
  - Hydronephrosis [Unknown]
  - Pelvi-ureteric obstruction [Unknown]
  - Fracture nonunion [Unknown]
  - Femur fracture [Unknown]
  - Limb asymmetry [Unknown]

NARRATIVE: CASE EVENT DATE: 20100717
